FAERS Safety Report 6370745-5 (Version None)
Quarter: 2009Q3

REPORT INFORMATION
  Report Type: 
  Country: None (occurrence: None)
  Receive Date: 20090923
  Receipt Date: 20080627
  Transmission Date: 20100115
  Serious: Yes (Other)
  Sender: FDA-Public Use
  Company Number: US-ASTRAZENECA-2006UW25065

PATIENT
  Age: 15258 Day
  Sex: Female
  Weight: 105.2 kg

DRUGS (15)
  1. SEROQUEL [Suspect]
     Route: 048
  2. GLUCOPHAGE [Concomitant]
     Indication: DIABETES MELLITUS
     Dosage: 500 MG TO 1000 MG
     Route: 065
  3. AMARYL [Concomitant]
     Indication: DIABETES MELLITUS
     Route: 048
  4. ZESTRIL [Concomitant]
     Indication: RENAL DISORDER
     Route: 065
  5. PREDNISONE [Concomitant]
     Indication: ASTHMA
     Dosage: 10 MG TO 40 MG
     Route: 065
  6. ALBUTEROL [Concomitant]
     Indication: ASTHMA
     Route: 048
  7. RANITIDINE [Concomitant]
     Route: 048
  8. AMITRIPTYLINE [Concomitant]
     Indication: INSOMNIA
     Dosage: 10 MG TO 25 MG
     Route: 048
  9. PAXIL [Concomitant]
     Indication: DEPRESSION
     Dosage: 20 MG TO 30 MG
     Route: 048
     Dates: start: 20021206
  10. PAXIL [Concomitant]
     Indication: ANXIETY
     Dosage: 20 MG TO 30 MG
     Route: 048
     Dates: start: 20021206
  11. TRAZODONE [Concomitant]
     Indication: INSOMNIA
     Route: 048
  12. OXYCODONE [Concomitant]
     Indication: PAIN
     Route: 048
  13. EFFEXOR XR [Concomitant]
     Indication: DEPRESSION
     Dosage: 75 MG TO 300 MG
     Route: 048
     Dates: start: 20030702
  14. AVANDIA [Concomitant]
     Indication: DIABETES MELLITUS
     Route: 048
  15. WELLBUTRIN [Concomitant]
     Route: 065

REACTIONS (37)
  - ABDOMINAL PAIN UPPER [None]
  - ADNEXA UTERI PAIN [None]
  - ANXIETY [None]
  - ARTHRALGIA [None]
  - ARTHRITIS [None]
  - ASTHENIA [None]
  - ASTHMA [None]
  - BACK PAIN [None]
  - BREAST PAIN [None]
  - CHEST PAIN [None]
  - COUGH [None]
  - DEPRESSION [None]
  - DIABETES MELLITUS [None]
  - DYSPEPSIA [None]
  - DYSPHONIA [None]
  - DYSPNOEA [None]
  - EPIGASTRIC DISCOMFORT [None]
  - FATIGUE [None]
  - GASTROOESOPHAGEAL REFLUX DISEASE [None]
  - HEADACHE [None]
  - HELICOBACTER INFECTION [None]
  - HEPATITIS C [None]
  - HYPERTENSIVE HEART DISEASE [None]
  - INSOMNIA [None]
  - MEMORY IMPAIRMENT [None]
  - MUSCULOSKELETAL PAIN [None]
  - NAUSEA [None]
  - OROPHARYNGEAL PAIN [None]
  - PAIN IN EXTREMITY [None]
  - PANIC DISORDER WITH AGORAPHOBIA [None]
  - PELVIC PAIN [None]
  - POST-TRAUMATIC STRESS DISORDER [None]
  - SCIATICA [None]
  - STRESS [None]
  - SYNCOPE [None]
  - VOMITING [None]
  - VULVOVAGINAL MYCOTIC INFECTION [None]
